FAERS Safety Report 17945233 (Version 2)
Quarter: 2020Q2

REPORT INFORMATION
  Report Type: Report from Study
  Country: None (occurrence: US)
  Receive Date: 20200626
  Receipt Date: 20200629
  Transmission Date: 20200714
  Serious: Yes (Hospitalization)
  Sender: FDA-Public Use
  Company Number: US-ABBVIE-20K-163-3411745-00

PATIENT
  Sex: Female

DRUGS (1)
  1. HUMIRA [Suspect]
     Active Substance: ADALIMUMAB
     Indication: HIDRADENITIS
     Dosage: CITRATE FREE
     Route: 058

REACTIONS (8)
  - Skin ulcer [Recovering/Resolving]
  - Urinary tract infection [Not Recovered/Not Resolved]
  - Asthenia [Recovering/Resolving]
  - Anaemia [Recovering/Resolving]
  - Hidradenitis [Recovering/Resolving]
  - Skin abrasion [Recovering/Resolving]
  - Dehydration [Recovering/Resolving]
  - Wound infection [Recovering/Resolving]
